FAERS Safety Report 8535772-8 (Version None)
Quarter: 2012Q3

REPORT INFORMATION
  Report Type: 
  Country: None (occurrence: None)
  Receive Date: 20120711
  Receipt Date: 20120606
  Transmission Date: 20120928
  Serious: Yes (Death, Other)
  Sender: FDA-Public Use
  Company Number: US-2012-10715

PATIENT
  Age: 61 Year
  Sex: Female

DRUGS (3)
  1. ALEMTUZUMAB (ALEMTUZUMAB) [Suspect]
     Dosage: 80 MG (MILLIGRAM(S),, PARENTERAL
  2. FLUDARABINE PHOSPHATE [Suspect]
     Dosage: 160 MG/M2,, PARENTERAL
  3. BUSULFEX [Suspect]
     Dosage: 260 MG/M2,, PARENTERAL
     Route: 051

REACTIONS (3)
  - MULTI-ORGAN FAILURE [None]
  - CYSTITIS VIRAL [None]
  - CYTOMEGALOVIRUS INFECTION [None]
